FAERS Safety Report 6735226-5 (Version None)
Quarter: 2010Q2

REPORT INFORMATION
  Report Type: 
  Country: None (occurrence: None)
  Receive Date: 20100521
  Receipt Date: 20100510
  Transmission Date: 20101027
  Serious: Yes (Hospitalization, Other)
  Sender: FDA-Public Use
  Company Number: US-JNJFOC-20081000157

PATIENT
  Sex: Male
  Weight: 86.64 kg

DRUGS (5)
  1. INFLIXIMAB [Suspect]
     Indication: PSORIASIS
     Route: 042
  2. DIOVAN [Concomitant]
  3. CADUET [Concomitant]
  4. COMBIVENT [Concomitant]
  5. AZMACORT [Concomitant]

REACTIONS (7)
  - DEHYDRATION [None]
  - GASTROENTERITIS [None]
  - PARATRACHEAL LYMPHADENOPATHY [None]
  - PNEUMONIA LEGIONELLA [None]
  - PULMONARY EMBOLISM [None]
  - RENAL FAILURE ACUTE [None]
  - THROMBOCYTOPENIA [None]
